FAERS Safety Report 8540375-5 (Version None)
Quarter: 2012Q3

REPORT INFORMATION
  Report Type: 
  Country: None (occurrence: None)
  Receive Date: 20120726
  Receipt Date: 20110927
  Transmission Date: 20120928
  Serious: No
  Sender: FDA-Public Use
  Company Number: US-ASTRAZENECA-2010SE56561

PATIENT
  Sex: Male

DRUGS (6)
  1. ASPIRIN [Concomitant]
  2. SEROQUEL [Suspect]
     Indication: BIPOLAR DISORDER
     Route: 048
  3. METFORMIN HYDROCHLORIDE [Concomitant]
  4. LEXAPRO [Concomitant]
  5. CLONOPIN [Concomitant]
  6. ZOCOR [Concomitant]

REACTIONS (6)
  - DIABETIC NEUROPATHY [None]
  - DIABETES MELLITUS [None]
  - GASTRITIS [None]
  - HEADACHE [None]
  - BACK PAIN [None]
  - WRONG TECHNIQUE IN DRUG USAGE PROCESS [None]
